FAERS Safety Report 20255225 (Version 1)
Quarter: 2021Q4

REPORT INFORMATION
  Report Type: Spontaneous
  Country: NL (occurrence: NL)
  Receive Date: 20211230
  Receipt Date: 20211230
  Transmission Date: 20220303
  Serious: Yes (Hospitalization)
  Sender: FDA-Public Use
  Company Number: NL-TEVA-2021-NL-1994464

PATIENT
  Age: 73 Year
  Sex: Male

DRUGS (4)
  1. FENTANYL [Interacting]
     Active Substance: FENTANYL
     Indication: Cancer pain
     Dosage: FORMULATION:PLASTERS; 25 MCG/HOUR, ONCE EVERY THREE DAYS
     Route: 065
  2. FENTANYL [Interacting]
     Active Substance: FENTANYL
     Indication: Cancer pain
     Dosage: FORMULATION:PLASTERS; 37.5 MCG/HOUR
     Route: 065
  3. FENTANYL [Interacting]
     Active Substance: FENTANYL
     Dosage: 50 MICROG/HOUR, PLASTER
     Route: 065
  4. ENZALUTAMIDE [Interacting]
     Active Substance: ENZALUTAMIDE
     Indication: Prostate cancer metastatic
     Dosage: 160 MILLIGRAM DAILY;
     Route: 065

REACTIONS (2)
  - Drug level decreased [Unknown]
  - Drug interaction [Unknown]
